FAERS Safety Report 8395396-2 (Version None)
Quarter: 2012Q2

REPORT INFORMATION
  Report Type: 
  Country: None (occurrence: None)
  Receive Date: 20120530
  Receipt Date: 20120524
  Transmission Date: 20120825
  Serious: No
  Sender: FDA-Public Use
  Company Number: US-PFIZER INC-2012126340

PATIENT
  Sex: Female
  Weight: 63 kg

DRUGS (1)
  1. LIPITOR [Suspect]
     Indication: BLOOD CHOLESTEROL INCREASED
     Dosage: 10 MG, 1X/DAY
     Route: 048
     Dates: start: 20120125, end: 20120401

REACTIONS (4)
  - OEDEMA MOUTH [None]
  - BUCCAL MUCOSAL ROUGHENING [None]
  - ORAL DISCOMFORT [None]
  - LIP DRY [None]
